FAERS Safety Report 14631222 (Version 1)
Quarter: 2018Q1

REPORT INFORMATION
  Report Type: Spontaneous
  Country: CA (occurrence: CA)
  Receive Date: 20180313
  Receipt Date: 20180313
  Transmission Date: 20180509
  Serious: Yes (Hospitalization, Other)
  Sender: FDA-Public Use
  Company Number: CA-JNJFOC-20180311113

PATIENT
  Age: 12 Year
  Sex: Female
  Weight: 34 kg

DRUGS (3)
  1. LEVOTHYROXINE. [Concomitant]
     Active Substance: LEVOTHYROXINE
     Route: 065
  2. ROCALTROL [Suspect]
     Active Substance: CALCITRIOL
     Indication: PSEUDOHYPOPARATHYROIDISM
     Route: 048
  3. CONCERTA [Suspect]
     Active Substance: METHYLPHENIDATE HYDROCHLORIDE
     Indication: DISTURBANCE IN ATTENTION
     Route: 048

REACTIONS (5)
  - Acute kidney injury [Recovered/Resolved]
  - Dehydration [Recovered/Resolved]
  - Asthenia [Recovered/Resolved]
  - Urine calcium/creatinine ratio decreased [Recovered/Resolved]
  - Hypercalcaemia [Recovered/Resolved]
